FAERS Safety Report 19246426 (Version 1)
Quarter: 2021Q2

REPORT INFORMATION
  Report Type: Spontaneous
  Country: US (occurrence: US)
  Receive Date: 20210511
  Receipt Date: 20210511
  Transmission Date: 20210717
  Serious: Yes (Other)
  Sender: FDA-Public Use
  Company Number: None

PATIENT
  Age: 64 Year
  Sex: Male
  Weight: 95.1 kg

DRUGS (2)
  1. TIKOSYN [Suspect]
     Active Substance: DOFETILIDE
     Indication: ATRIAL FIBRILLATION
     Dosage: 500 UGM
     Route: 048
     Dates: start: 20210510, end: 20210510
  2. TIKOSYN [Concomitant]
     Active Substance: DOFETILIDE
     Dates: start: 20210510, end: 20210510

REACTIONS (4)
  - Electrocardiogram abnormal [None]
  - Chest pain [None]
  - Dysgeusia [None]
  - Chest discomfort [None]

NARRATIVE: CASE EVENT DATE: 20210510
